FAERS Safety Report 14138844 (Version 2)
Quarter: 2017Q4

REPORT INFORMATION
  Report Type: Report from Study
  Country: DE (occurrence: DE)
  Receive Date: 20171027
  Receipt Date: 20171102
  Transmission Date: 20180321
  Serious: Yes (Life-Threatening, Hospitalization)
  Sender: FDA-Public Use
  Company Number: US-ASTRAZENECA-2017SF08688

PATIENT
  Age: 26955 Day
  Sex: Female
  Weight: 70.7 kg

DRUGS (19)
  1. L-THYROXIN [Concomitant]
     Active Substance: LEVOTHYROXINE SODIUM
     Indication: HYPOTHYROIDISM
     Dosage: ONGOING
     Route: 048
     Dates: start: 199905
  2. CEFUROXIM [Concomitant]
     Active Substance: CEFUROXIME
     Indication: CHRONIC OBSTRUCTIVE PULMONARY DISEASE
     Route: 048
     Dates: start: 20170529, end: 20170603
  3. BISOPROLOL [Concomitant]
     Active Substance: BISOPROLOL
     Indication: MYOCARDIAL INFARCTION
     Dosage: ONGOING
     Route: 048
     Dates: start: 20170402
  4. RAMIPRIL. [Concomitant]
     Active Substance: RAMIPRIL
     Indication: MYOCARDIAL INFARCTION
     Dosage: ONGOING
     Route: 048
     Dates: start: 20170402
  5. VENTOLIN HFA [Concomitant]
     Active Substance: ALBUTEROL SULFATE
     Indication: CHRONIC OBSTRUCTIVE PULMONARY DISEASE
     Dosage: ONGOING90.0UG AS REQUIRED
     Route: 055
     Dates: start: 20170126
  6. LOSARTAN. [Concomitant]
     Active Substance: LOSARTAN
     Indication: HYPERTENSION
     Dosage: ONGOING
     Route: 048
     Dates: start: 2014
  7. ATORVASTATIN [Concomitant]
     Active Substance: ATORVASTATIN
     Indication: MYOCARDIAL INFARCTION
     Dosage: ONGOING
     Route: 048
     Dates: start: 20170403
  8. PREDNISOLON [Concomitant]
     Active Substance: PREDNISOLONE
     Indication: CHRONIC OBSTRUCTIVE PULMONARY DISEASE
     Route: 048
     Dates: start: 20170605, end: 20170612
  9. ACETYLSALICYLIC ACID [Concomitant]
     Active Substance: ASPIRIN
     Indication: MYOCARDIAL INFARCTION
     Dosage: ONGOING
     Route: 048
     Dates: start: 20170402
  10. ATORVASTATIN [Concomitant]
     Active Substance: ATORVASTATIN
     Indication: MYOCARDIAL INFARCTION
     Dosage: ONGOING
     Route: 048
     Dates: start: 20170402
  11. PREDNISOLON [Concomitant]
     Active Substance: PREDNISOLONE
     Indication: CHRONIC OBSTRUCTIVE PULMONARY DISEASE
     Route: 048
     Dates: start: 20170603, end: 20170604
  12. PANTOPRAZOLE [Concomitant]
     Active Substance: PANTOPRAZOLE
     Indication: MYOCARDIAL INFARCTION
     Dosage: ONGOING
     Route: 048
     Dates: start: 20170402
  13. GLYCOPYRRONIUM + FORMOTEROL FUMARATE INHALATION AEROSOL (PEARL) [Suspect]
     Active Substance: GLYCOPYRRONIUM\FORMOTEROL FUMARATE
     Indication: CHRONIC OBSTRUCTIVE PULMONARY DISEASE
     Dosage: 14.4/9.6 ???G EX-ACTUATOR BID
     Route: 055
     Dates: start: 20170209
  14. HCT (HYDROCHLOROTHIAZID)\N [Concomitant]
     Indication: MYOCARDIAL INFARCTION
     Dosage: ONGOING
     Route: 048
     Dates: start: 20170402
  15. PRASUGREL. [Concomitant]
     Active Substance: PRASUGREL
     Indication: MYOCARDIAL INFARCTION
     Dosage: ONGOING
     Route: 048
     Dates: start: 20170402
  16. PREDNISOLON [Concomitant]
     Active Substance: PREDNISOLONE
     Indication: CHRONIC OBSTRUCTIVE PULMONARY DISEASE
     Route: 048
     Dates: start: 20170602, end: 20170602
  17. SIMVASTATIN. [Concomitant]
     Active Substance: SIMVASTATIN
     Indication: HYPERCHOLESTEROLAEMIA
     Dosage: ONGOING
     Route: 048
     Dates: start: 2013
  18. VIGANTOLETTEN [Concomitant]
     Active Substance: CHOLECALCIFEROL
     Indication: OSTEOPOROSIS
     Dosage: ONGOING
     Route: 048
     Dates: start: 2010
  19. VESIKUR [Concomitant]
     Active Substance: SOLIFENACIN SUCCINATE
     Indication: INCONTINENCE
     Dosage: ONGOING
     Route: 048
     Dates: start: 2008

REACTIONS (1)
  - Acute myocardial infarction [Recovered/Resolved]

NARRATIVE: CASE EVENT DATE: 20171019
